FAERS Safety Report 7346487-6 (Version None)
Quarter: 2011Q1

REPORT INFORMATION
  Report Type: 
  Country: None (occurrence: None)
  Receive Date: 20110311
  Receipt Date: 20110228
  Transmission Date: 20110831
  Serious: Yes (Other)
  Sender: FDA-Public Use
  Company Number: CA-JNJFOC-20110301576

PATIENT
  Sex: Male
  Weight: 100 kg

DRUGS (5)
  1. ATAZANAVIR [Concomitant]
     Indication: HIV TEST POSITIVE
  2. RITONAVIR [Concomitant]
     Indication: HIV TEST POSITIVE
  3. IMURAN [Concomitant]
     Route: 048
  4. REMICADE [Suspect]
     Indication: CROHN'S DISEASE
     Route: 042
  5. TRUVADA [Concomitant]
     Indication: HIV TEST POSITIVE

REACTIONS (1)
  - NEPHROLITHIASIS [None]
